FAERS Safety Report 5392248-7 (Version None)
Quarter: 2007Q3

REPORT INFORMATION
  Report Type: 
  Country: None (occurrence: None)
  Receive Date: 20070720
  Receipt Date: 20070714
  Transmission Date: 20080115
  Serious: Yes (Death)
  Sender: FDA-Public Use
  Company Number: US-ELI_LILLY_AND_COMPANY-US200706006340

PATIENT
  Age: 54 Year
  Sex: Female

DRUGS (5)
  1. XIGRIS [Suspect]
     Indication: SEPSIS
     Dosage: 24 UG, EVERY HOUR
     Route: 042
     Dates: start: 20070625, end: 20070626
  2. OXYGEN [Concomitant]
     Indication: RESPIRATORY FAILURE
  3. DIFLUCAN [Concomitant]
  4. ZYVOX [Concomitant]
     Indication: SEPSIS
  5. ZOSYN [Concomitant]
     Indication: SEPSIS

REACTIONS (1)
  - SEPSIS [None]
